FAERS Safety Report 23218195 (Version 1)
Quarter: 2023Q4

REPORT INFORMATION
  Report Type: Spontaneous
  Country: None (occurrence: US)
  Receive Date: 20231122
  Receipt Date: 20231122
  Transmission Date: 20240109
  Serious: No
  Sender: FDA-Public Use
  Company Number: US-Kindeva Drug Delivery L.P.-2148597

PATIENT
  Age: 79 Year
  Sex: Female

DRUGS (2)
  1. ALBUTEROL SULFATE [Suspect]
     Active Substance: ALBUTEROL SULFATE
     Indication: Chronic obstructive pulmonary disease
     Route: 055
  2. ALBUTEROL SULFATE [Suspect]
     Active Substance: ALBUTEROL SULFATE
     Indication: Asthma

REACTIONS (6)
  - Product dose omission issue [Unknown]
  - Cough [Unknown]
  - Dyspnoea [Unknown]
  - Intentional product use issue [Unknown]
  - Device failure [Unknown]
  - Dysarthria [Unknown]

NARRATIVE: CASE EVENT DATE: 20231020
